FAERS Safety Report 6672597 (Version 7)
Quarter: 2013Q1

REPORT INFORMATION
  Report Type: Spontaneous
  Country: US (occurrence: US)
  Receive Date: 20080619
  Receipt Date: 20130116
  Transmission Date: 20140127
  Serious: Yes (Other)
  Sender: FDA-Public Use
  Company Number: US-BAYER-200825368NA

PATIENT
  Age: 57 Year
  Sex: Male
  Weight: 77.1 kg

DRUGS (58)
  1. MAGNEVIST [Suspect]
     Indication: NUCLEAR MAGNETIC RESONANCE IMAGING
  2. OMNISCAN [Suspect]
     Indication: NUCLEAR MAGNETIC RESONANCE IMAGING RENAL
     Dosage: UNK UNK, ONCE
     Dates: start: 20050825, end: 20050825
  3. OMNISCAN [Suspect]
     Indication: ANGIOGRAM PERIPHERAL
     Dosage: UNK, ONCE
     Dates: start: 20050830, end: 20050830
  4. OMNISCAN [Suspect]
     Indication: VENOGRAM RENAL
     Dosage: UNK, ONCE
     Dates: start: 20050901, end: 20050901
  5. OMNISCAN [Suspect]
     Indication: VENOGRAM RENAL
     Dosage: UNK, ONCE
     Dates: start: 20050906, end: 20050906
  6. OMNISCAN [Suspect]
     Indication: NUCLEAR MAGNETIC RESONANCE IMAGING
     Dosage: UNK, ONCE
     Dates: start: 20050908, end: 20050908
  7. OMNISCAN [Suspect]
     Indication: NUCLEAR MAGNETIC RESONANCE IMAGING RENAL
     Dosage: UNK, ONCE
     Dates: start: 20050928, end: 20050929
  8. OMNISCAN [Suspect]
     Indication: NUCLEAR MAGNETIC RESONANCE IMAGING RENAL
     Dosage: UNK, ONCE
     Dates: start: 20051001, end: 20051001
  9. OMNISCAN [Suspect]
     Indication: NUCLEAR MAGNETIC RESONANCE IMAGING RENAL
     Dosage: UNK, ONCE
     Dates: start: 20051003, end: 20051003
  10. OMNISCAN [Suspect]
     Indication: NUCLEAR MAGNETIC RESONANCE IMAGING RENAL
     Dosage: UNK, ONCE
     Dates: start: 20051018, end: 20051018
  11. OMNISCAN [Suspect]
     Indication: NUCLEAR MAGNETIC RESONANCE IMAGING RENAL
     Dosage: UNK, ONCE
     Dates: start: 20051021, end: 20051021
  12. OMNISCAN [Suspect]
     Indication: NUCLEAR MAGNETIC RESONANCE IMAGING RENAL
     Dosage: UNK, ONCE
     Dates: start: 20051103, end: 20051103
  13. OMNISCAN [Suspect]
     Indication: NUCLEAR MAGNETIC RESONANCE IMAGING RENAL
     Dosage: UNK
  14. OPTIMARK [Suspect]
     Indication: NUCLEAR MAGNETIC RESONANCE IMAGING BRAIN
     Dosage: 19 ML, UNK
     Dates: start: 20050420, end: 20050420
  15. OPTIMARK [Suspect]
     Indication: NUCLEAR MAGNETIC RESONANCE IMAGING BRAIN
     Dosage: 19 ML, ONCE
     Dates: start: 20050705, end: 20050705
  16. MULTIHANCE [GADOBENIC ACID MEGLUMINE] [Suspect]
     Indication: NUCLEAR MAGNETIC RESONANCE IMAGING
  17. PROHANCE [GADOTERIDOL] [Suspect]
     Indication: NUCLEAR MAGNETIC RESONANCE IMAGING
  18. GADOLINIUM [Suspect]
     Indication: NUCLEAR MAGNETIC RESONANCE IMAGING
     Dosage: UNK UNK, ONCE
     Dates: start: 20060317, end: 20060317
  19. COUMADIN [Concomitant]
  20. PRAVACHOL [Concomitant]
  21. LOPRESSOR [Concomitant]
  22. VIAGRA [Concomitant]
  23. ACETYLSALICYLIC ACID [Concomitant]
  24. FOLIC ACID [Concomitant]
  25. THIAMINE [Concomitant]
  26. ALBUTEROL [Concomitant]
  27. SPIRIVA [Concomitant]
  28. ATIVAN [Concomitant]
  29. SODIUM CITRATE [Concomitant]
  30. FLAGYL [Concomitant]
  31. HEPARIN [Concomitant]
  32. CYTOXAN [Concomitant]
  33. TYLENOL [PARACETAMOL] [Concomitant]
  34. TRAZODONE [Concomitant]
  35. PROTONIX [Concomitant]
  36. PREDNISONE [Concomitant]
  37. CALCITRIOL [Concomitant]
  38. CALCITONIN [Concomitant]
  39. LABETALOL [Concomitant]
  40. NORVASC [Concomitant]
  41. ZAROXOLYN [Concomitant]
  42. LASIX [Concomitant]
  43. NEPHROVITE [VIT C,VIT H,B5,B12,B9,B3,B6,B2,B1 HCL] [Concomitant]
  44. MAGNESIUM OXIDE [Concomitant]
  45. RENAGEL [SEVELAMER] [Concomitant]
  46. PENTAMIDINE [Concomitant]
  47. PHOSLO [Concomitant]
  48. KAYEXALATE [Concomitant]
  49. OXYCODONE [Concomitant]
  50. MS CONTIN [Concomitant]
  51. DARBEPOETIN ALFA [Concomitant]
  52. LEXAPRO [Concomitant]
  53. WELLBUTRIN [Concomitant]
  54. NORMODYNE [Concomitant]
  55. LISINOPRIL [Concomitant]
  56. MIRAPEX [Concomitant]
  57. FOSAMAX [Concomitant]
  58. COMPAZINE [Concomitant]

REACTIONS (35)
  - Nephrogenic systemic fibrosis [Not Recovered/Not Resolved]
  - Dry skin [Not Recovered/Not Resolved]
  - Pruritus [Not Recovered/Not Resolved]
  - Erythema [Not Recovered/Not Resolved]
  - Pain in extremity [Not Recovered/Not Resolved]
  - Skin lesion [Not Recovered/Not Resolved]
  - Hypoaesthesia [Not Recovered/Not Resolved]
  - Local swelling [Not Recovered/Not Resolved]
  - Musculoskeletal stiffness [Not Recovered/Not Resolved]
  - Joint stiffness [Not Recovered/Not Resolved]
  - Muscular weakness [Not Recovered/Not Resolved]
  - Fatigue [Not Recovered/Not Resolved]
  - Peau d^orange [Not Recovered/Not Resolved]
  - Injury [Not Recovered/Not Resolved]
  - Scar [Not Recovered/Not Resolved]
  - Pain [Not Recovered/Not Resolved]
  - Anxiety [Not Recovered/Not Resolved]
  - Emotional distress [Not Recovered/Not Resolved]
  - Anhedonia [Not Recovered/Not Resolved]
  - Joint range of motion decreased [Not Recovered/Not Resolved]
  - Arthralgia [Not Recovered/Not Resolved]
  - Skin tightness [Not Recovered/Not Resolved]
  - Skin wrinkling [Not Recovered/Not Resolved]
  - Skin hypopigmentation [Not Recovered/Not Resolved]
  - Pruritus [Not Recovered/Not Resolved]
  - Skin plaque [Not Recovered/Not Resolved]
  - Oedema peripheral [Not Recovered/Not Resolved]
  - Skin hypertrophy [Not Recovered/Not Resolved]
  - Extremity contracture [Not Recovered/Not Resolved]
  - Excoriation [Not Recovered/Not Resolved]
  - Skin fibrosis [Not Recovered/Not Resolved]
  - Pain of skin [Not Recovered/Not Resolved]
  - Rash macular [Not Recovered/Not Resolved]
  - Erythema induratum [Not Recovered/Not Resolved]
  - Rash [Not Recovered/Not Resolved]
